FAERS Safety Report 13792848 (Version 1)
Quarter: 2017Q3

REPORT INFORMATION
  Report Type: Spontaneous
  Country: US (occurrence: US)
  Receive Date: 20170726
  Receipt Date: 20170726
  Transmission Date: 20171127
  Serious: No
  Sender: FDA-Public Use
  Company Number: US-AMGEN-USASP2017108706

PATIENT
  Sex: Female

DRUGS (9)
  1. METHOTREXATE. [Suspect]
     Active Substance: METHOTREXATE
     Indication: RHEUMATOID ARTHRITIS
     Dosage: UNK
     Route: 065
     Dates: start: 2006, end: 2015
  2. AZULFIDINE [Suspect]
     Active Substance: SULFASALAZINE
     Indication: RHEUMATOID ARTHRITIS
     Route: 065
  3. HUMIRA [Concomitant]
     Active Substance: ADALIMUMAB
     Dosage: UNK
     Route: 065
     Dates: start: 2005
  4. MOBIC [Concomitant]
     Active Substance: MELOXICAM
  5. PREDNISONE. [Concomitant]
     Active Substance: PREDNISONE
  6. PLAQUENIL [Concomitant]
     Active Substance: HYDROXYCHLOROQUINE SULFATE
  7. MOTRIN [Concomitant]
     Active Substance: IBUPROFEN
  8. CLINORIL [Concomitant]
     Active Substance: SULINDAC
  9. ENBREL [Suspect]
     Active Substance: ETANERCEPT
     Indication: RHEUMATOID ARTHRITIS
     Dosage: UNK
     Route: 065
     Dates: start: 2006, end: 2007

REACTIONS (1)
  - Drug ineffective [Unknown]
